FAERS Safety Report 6641505-2 (Version None)
Quarter: 2010Q1

REPORT INFORMATION
  Report Type: 
  Country: None (occurrence: None)
  Receive Date: 20100317
  Receipt Date: 20100317
  Transmission Date: 20100710
  Serious: Yes (Other)
  Sender: FDA-Public Use
  Company Number: None

PATIENT
  Age: 36 Year
  Sex: Female
  Weight: 83.5 kg

DRUGS (4)
  1. MORPHINE [Suspect]
     Indication: PAIN
     Dosage: 4MG ONCE IV
     Route: 042
     Dates: start: 20091208
  2. OXYCODONE HCL AND ACETAMINOPHEN [Concomitant]
  3. GABAPENTIN [Concomitant]
  4. LIDOCAINE [Concomitant]

REACTIONS (6)
  - AGITATION [None]
  - BURNING SENSATION [None]
  - CHEST PAIN [None]
  - DRY MOUTH [None]
  - DYSPNOEA [None]
  - FLUSHING [None]
